FAERS Safety Report 6122123-1 (Version None)
Quarter: 2009Q1

REPORT INFORMATION
  Report Type: 
  Country: None (occurrence: None)
  Receive Date: 20090318
  Receipt Date: 20090306
  Transmission Date: 20090719
  Serious: Yes (Hospitalization, Other)
  Sender: FDA-Public Use
  Company Number: GB-RANBAXY-2008RR-18483

PATIENT
  Age: 75 Year
  Sex: Female

DRUGS (7)
  1. GABAPENTIN [Suspect]
     Indication: ARTHRALGIA
     Dosage: 300 MG, TID
     Route: 048
  2. AMLODIPINE [Concomitant]
     Dosage: 5 MG, QD
  3. DICLOFENAC [Concomitant]
     Dosage: 75 MG, BID
  4. DIHYDROCODEINE BITARTRATE INJ [Concomitant]
     Dosage: 30 MG, QID
  5. FUROSEMIDE [Concomitant]
     Dosage: 80 MG, QD
  6. IRBESARTAN [Concomitant]
     Dosage: 300 MG, QD
  7. TRAMADOL HCL [Concomitant]
     Dosage: 50 MG, QID

REACTIONS (7)
  - DEPRESSED LEVEL OF CONSCIOUSNESS [None]
  - DRUG TOXICITY [None]
  - FALL [None]
  - LOSS OF CONSCIOUSNESS [None]
  - OFF LABEL USE [None]
  - RENAL FAILURE ACUTE [None]
  - SOMNOLENCE [None]
